FAERS Safety Report 5116619-9 (Version None)
Quarter: 2006Q3

REPORT INFORMATION
  Report Type: 
  Country: None (occurrence: None)
  Receive Date: 20060928
  Receipt Date: 20060921
  Transmission Date: 20061208
  Serious: Yes (Other)
  Sender: FDA-Public Use
  Company Number: NL-AVENTIS-200619992GDDC

PATIENT
  Age: 43 Year
  Sex: Female

DRUGS (3)
  1. METRONIDAZOLE [Suspect]
     Indication: GINGIVITIS
     Route: 048
  2. AMOXICILLIN [Concomitant]
     Indication: GINGIVITIS
     Route: 048
  3. CEFUROXIME [Concomitant]
     Indication: GINGIVITIS

REACTIONS (1)
  - STEVENS-JOHNSON SYNDROME [None]
